FAERS Safety Report 15792760 (Version 1)
Quarter: 2019Q1

REPORT INFORMATION
  Report Type: Spontaneous
  Country: US (occurrence: US)
  Receive Date: 20190107
  Receipt Date: 20190107
  Transmission Date: 20190417
  Serious: Yes (Life-Threatening, Hospitalization, Other)
  Sender: FDA-Public Use
  Company Number: US-MICRO LABS LIMITED-ML2018-02888

PATIENT

DRUGS (2)
  1. TRANEXAMIC ACID. [Suspect]
     Active Substance: TRANEXAMIC ACID
     Indication: PROCOAGULANT THERAPY
     Dosage: 1 GRAM OF TRANEXAMIC ACID IN 100 ML OF 0.9% NORMAL SALINE INFUSED OVER 10 MINUTES VIA INTRAVENOUS (I
  2. TRANEXAMIC ACID. [Suspect]
     Active Substance: TRANEXAMIC ACID
     Dosage: 1 GRAM OF TXA IN 100 ML OF 0.9% NORMAL SALINE INFUSED OVER EIGHT HOURS VIA IV INFUSION
     Route: 042

REACTIONS (1)
  - Ischaemic stroke [Unknown]
